FAERS Safety Report 8620401-5 (Version None)
Quarter: 2012Q3

REPORT INFORMATION
  Report Type: 
  Country: None (occurrence: None)
  Receive Date: 20120824
  Receipt Date: 20120525
  Transmission Date: 20120928
  Serious: Yes (Hospitalization)
  Sender: FDA-Public Use
  Company Number: FR-VIIV HEALTHCARE LIMITED-B0805330A

PATIENT
  Sex: Female

DRUGS (3)
  1. KALETRA [Suspect]
     Indication: ANTIVIRAL PROPHYLAXIS
     Dosage: 2TAB TWICE PER DAY
     Route: 048
     Dates: start: 20120319, end: 20120524
  2. ABACAVIR SULFATE/LAMIVUDINE [Suspect]
     Indication: ANTIVIRAL PROPHYLAXIS
     Dosage: 1TAB PER DAY
     Route: 048
     Dates: start: 20120305, end: 20120319
  3. COMBIVIR [Suspect]
     Indication: ANTIVIRAL PROPHYLAXIS
     Dosage: 1TAB TWICE PER DAY
     Route: 048
     Dates: start: 20120319, end: 20120524

REACTIONS (3)
  - MATERNAL EXPOSURE DURING PREGNANCY [None]
  - ADVERSE REACTION [None]
  - CHOLESTASIS OF PREGNANCY [None]
